FAERS Safety Report 23849559 (Version 2)
Quarter: 2024Q2

REPORT INFORMATION
  Report Type: Spontaneous
  Country: US (occurrence: US)
  Receive Date: 20240513
  Receipt Date: 20240529
  Transmission Date: 20240716
  Serious: Yes (Other)
  Sender: FDA-Public Use
  Company Number: US-NOVOPROD-1210627

PATIENT
  Sex: Male

DRUGS (1)
  1. LEVEMIR [Suspect]
     Active Substance: INSULIN DETEMIR
     Indication: Diabetes mellitus
     Dosage: 90 IU QD (55 UNITS(MORNING),35 UNITS(EVENING)) STARTED ON OR BEFORE 2010
     Route: 058

REACTIONS (2)
  - Cardiac operation [Unknown]
  - Limb operation [Unknown]
